FAERS Safety Report 9801051 (Version 8)
Quarter: 2020Q1

REPORT INFORMATION
  Report Type: Report from Study
  Country: US (occurrence: US)
  Receive Date: 20140107
  Receipt Date: 20200108
  Transmission Date: 20200409
  Serious: Yes (Hospitalization, Other)
  Sender: FDA-Public Use
  Company Number: US-SA-2014SA000212

PATIENT
  Age: 55 Year
  Sex: Female

DRUGS (8)
  1. TERIFLUNOMIDE. [Suspect]
     Active Substance: TERIFLUNOMIDE
     Dosage: 14 MG,QD
     Route: 048
  2. TIZANIDINE. [Concomitant]
     Active Substance: TIZANIDINE
     Indication: PAIN
     Dosage: 8 MG,QID
     Dates: start: 2009
  3. TEMAZEPAM. [Concomitant]
     Active Substance: TEMAZEPAM
     Indication: SLEEP DISORDER
     Dosage: 30 MG,QD
     Dates: start: 2009
  4. OXYCODONE HYDROCHLORIDE;PARACETAMOL [Concomitant]
     Active Substance: ACETAMINOPHEN\OXYCODONE HYDROCHLORIDE
     Indication: PAIN
     Dosage: 10/325 MG QID
     Dates: start: 2009
  5. TERIFLUNOMIDE. [Suspect]
     Active Substance: TERIFLUNOMIDE
     Dosage: 14 MG, UNK
     Dates: start: 20190626
  6. TERIFLUNOMIDE. [Suspect]
     Active Substance: TERIFLUNOMIDE
     Indication: MULTIPLE SCLEROSIS
     Dosage: 14 MG,QD
     Route: 048
     Dates: start: 20120228
  7. GABAPENTIN. [Concomitant]
     Active Substance: GABAPENTIN
     Dosage: 800 MG,QID
     Dates: start: 2009
  8. BENADRYL [Concomitant]
     Active Substance: DIPHENHYDRAMINE HYDROCHLORIDE
     Dosage: 50 MG,QID

REACTIONS (36)
  - Oesophagitis [Recovered/Resolved]
  - Aphonia [Not Recovered/Not Resolved]
  - Asthenia [Not Recovered/Not Resolved]
  - Malaise [Unknown]
  - Joint swelling [Unknown]
  - Hypokinesia [Unknown]
  - Pulmonary embolism [Recovered/Resolved]
  - Gastrointestinal disorder [Recovered/Resolved]
  - Hypotension [Not Recovered/Not Resolved]
  - Inflammation [Unknown]
  - Gastrointestinal ulcer [Recovered/Resolved]
  - Gastritis [Recovered/Resolved]
  - Spinal cord disorder [Unknown]
  - Pneumonia [Recovered/Resolved]
  - Primary progressive multiple sclerosis [Unknown]
  - Abdominal pain [Unknown]
  - Blood cholesterol increased [Unknown]
  - Weight decreased [Not Recovered/Not Resolved]
  - Unevaluable event [Unknown]
  - Diarrhoea [Recovered/Resolved]
  - Asthenia [Recovered/Resolved]
  - Nausea [Recovered/Resolved]
  - Gastric disorder [Recovered/Resolved]
  - Decreased appetite [Not Recovered/Not Resolved]
  - Grip strength decreased [Unknown]
  - Scoliosis [Not Recovered/Not Resolved]
  - Tremor [Not Recovered/Not Resolved]
  - Pain [Not Recovered/Not Resolved]
  - Increased tendency to bruise [Not Recovered/Not Resolved]
  - Alopecia [Unknown]
  - Diarrhoea [Recovered/Resolved]
  - Bleeding time prolonged [Recovered/Resolved]
  - Dehydration [Recovered/Resolved]
  - Vomiting [Recovered/Resolved]
  - Stress [Unknown]
  - Coagulopathy [Unknown]

NARRATIVE: CASE EVENT DATE: 20131220
